FAERS Safety Report 5862037-5 (Version None)
Quarter: 2008Q3

REPORT INFORMATION
  Report Type: 
  Country: None (occurrence: None)
  Receive Date: 20080826
  Receipt Date: 20080811
  Transmission Date: 20090109
  Serious: Yes (Hospitalization)
  Sender: FDA-Public Use
  Company Number: 1000000600

PATIENT
  Age: 63 Year
  Sex: Male
  Weight: 95 kg

DRUGS (6)
  1. ESCITALOPRAM OXALATE [Suspect]
     Indication: DEPRESSION
     Dosage: 10 MG (10 MG, 1 IN 1 D), ORAL
     Route: 048
     Dates: start: 20070921, end: 20071030
  2. ESCITALOPRAM OXALATE [Suspect]
     Indication: DEPRESSION
     Dosage: 10 MG (10 MG, 1 IN 1 D),ORAL
     Route: 048
     Dates: start: 20080423, end: 20080505
  3. ESCITALOPRAM OXALATE [Suspect]
     Indication: DEPRESSION
     Dosage: 4.8 MG (4.8 MG, 1 IN 1 D), ORAL
     Route: 048
     Dates: start: 20070905, end: 20070920
  4. OPIPRAM (TABLETS) [Concomitant]
  5. ASPIRIN [Concomitant]
  6. CALCIUM (CHEWABLE TABLETS) [Concomitant]

REACTIONS (3)
  - HAEMOLYTIC ANAEMIA [None]
  - JAUNDICE [None]
  - WHITE BLOOD CELL COUNT INCREASED [None]
